FAERS Safety Report 9820404 (Version 1)
Quarter: 2013Q4

REPORT INFORMATION
  Report Type: Spontaneous
  Country: US (occurrence: None)
  Receive Date: 20131028
  Receipt Date: 20131028
  Transmission Date: 20140711
  Serious: Yes (Other)
  Sender: FDA-Public Use
  Company Number: SYM-2013-03682

PATIENT
  Age: 22 Year
  Sex: Male

DRUGS (11)
  1. WELLBUTRIN [Suspect]
     Indication: DEPRESSION
  2. EFFEXOR [Suspect]
     Indication: PRODUCT USED FOR UNKNOWN INDICATION
  3. CELEXA [Suspect]
     Indication: DEPRESSION
  4. GEODON [Suspect]
     Indication: PRODUCT USED FOR UNKNOWN INDICATION
  5. ZOLOFT [Suspect]
     Indication: DEPRESSION
  6. KLONOPIN(CLONAZEPAM)(CLONAZEPAM) [Concomitant]
  7. PROZAC(FLUOXETINE HYDROCHLORIDE)(FLUOXETINE HYDROCHLORIDE) [Concomitant]
  8. CYMBALTA (DULOXETINE HYDROCHLORIDE)(DULOXETINE HYDROCHLORIDE) [Concomitant]
  9. PAXIL(PIROXICAM)(PIROXICAM) [Concomitant]
  10. ZYPREXA(OLANZAPINE)(ONLAZAPINE) [Concomitant]
  11. ABILIFY(ARIPIPRAZOLE)(ARIPIPRAZOLE) [Concomitant]

REACTIONS (3)
  - Drug ineffective [None]
  - Akinesia [None]
  - Platelet count decreased [None]
